FAERS Safety Report 9052474 (Version 1)
Quarter: 2013Q1

REPORT INFORMATION
  Report Type: Spontaneous
  Country: AT (occurrence: AT)
  Receive Date: 20130207
  Receipt Date: 20130207
  Transmission Date: 20140127
  Serious: Yes (Other)
  Sender: FDA-Public Use
  Company Number: AT-VERTEX PHARMACEUTICALS INC.-2013-001602

PATIENT
  Age: 47 None
  Sex: Male

DRUGS (4)
  1. INCIVO [Suspect]
     Indication: HEPATITIS C
     Dates: start: 20121009, end: 20121228
  2. INCIVO [Suspect]
     Indication: HEPATITIS C VIRUS TEST POSITIVE
  3. COPEGUS [Concomitant]
     Indication: HEPATITIS C VIRUS TEST POSITIVE
     Dosage: DOSAGE FORM: UNKNOWN
     Route: 065
     Dates: start: 20121009
  4. PEGASYS [Concomitant]
     Indication: HEPATITIS C VIRUS TEST POSITIVE
     Dosage: DOSAGE FORM: UNKNOWN
     Route: 065
     Dates: start: 20121009

REACTIONS (1)
  - Rash [Recovered/Resolved]
